FAERS Safety Report 24316637 (Version 2)
Quarter: 2024Q4

REPORT INFORMATION
  Report Type: Spontaneous
  Country: US (occurrence: US)
  Receive Date: 20240913
  Receipt Date: 20241007
  Transmission Date: 20250115
  Serious: No
  Sender: NOVARTIS
  Company Number: US-002147023-NVSC2024US182386

PATIENT
  Sex: Female

DRUGS (1)
  1. COSENTYX [Suspect]
     Active Substance: SECUKINUMAB
     Indication: Product used for unknown indication
     Dosage: UNK (WEEKLY DOSE)
     Route: 065

REACTIONS (3)
  - Peripheral swelling [Unknown]
  - Musculoskeletal stiffness [Unknown]
  - Drug effect less than expected [Unknown]
